FAERS Safety Report 6480955-4 (Version None)
Quarter: 2009Q4

REPORT INFORMATION
  Report Type: 
  Country: None (occurrence: None)
  Receive Date: 20091203
  Receipt Date: 20091118
  Transmission Date: 20100525
  Serious: Yes (Hospitalization)
  Sender: FDA-Public Use
  Company Number: 1000010469

PATIENT
  Age: 82 Year
  Sex: Male

DRUGS (8)
  1. MEMANTINE HCL [Suspect]
     Indication: PNEUMONIA ASPIRATION
     Dosage: 20 MG (20 MG, 1 N 1 D), ORAL
     Route: 048
  2. TAVANIC [Suspect]
     Dosage: ORAL
     Route: 048
     Dates: start: 20090706, end: 20090708
  3. ROCEPHIN [Concomitant]
  4. RISPERDAL [Concomitant]
  5. SERESTA (10 MILLIGRAM) [Concomitant]
  6. EFFEXOR [Concomitant]
  7. FORLAX [Concomitant]
  8. DOLIPRANE [Concomitant]

REACTIONS (4)
  - PETIT MAL EPILEPSY [None]
  - POSTICTAL STATE [None]
  - SALIVARY HYPERSECRETION [None]
  - SOMNOLENCE [None]
